FAERS Safety Report 25160164 (Version 1)
Quarter: 2025Q2

REPORT INFORMATION
  Report Type: Spontaneous
  Country: US (occurrence: US)
  Receive Date: 20250404
  Receipt Date: 20250404
  Transmission Date: 20250716
  Serious: Yes (Hospitalization, Other)
  Sender: MYLAN
  Company Number: US-MYLANLABS-2025M1027376

PATIENT
  Age: 57 Year
  Sex: Male

DRUGS (13)
  1. MYCOPHENOLATE MOFETIL [Suspect]
     Active Substance: MYCOPHENOLATE MOFETIL
     Indication: Immunosuppressant drug therapy
  2. MYCOPHENOLATE MOFETIL [Suspect]
     Active Substance: MYCOPHENOLATE MOFETIL
     Indication: Prophylaxis against transplant rejection
  3. TACROLIMUS [Interacting]
     Active Substance: TACROLIMUS
     Indication: Immunosuppressant drug therapy
  4. TACROLIMUS [Interacting]
     Active Substance: TACROLIMUS
     Indication: Prophylaxis against transplant rejection
  5. PREDNISONE [Suspect]
     Active Substance: PREDNISONE
     Indication: Immunosuppressant drug therapy
     Dosage: 7.5 MILLIGRAM, QD
  6. PREDNISONE [Suspect]
     Active Substance: PREDNISONE
     Indication: Prophylaxis against transplant rejection
  7. SIROLIMUS [Suspect]
     Active Substance: SIROLIMUS
     Indication: Immunosuppressant drug therapy
  8. SIROLIMUS [Suspect]
     Active Substance: SIROLIMUS
     Indication: Prophylaxis against transplant rejection
  9. FLUCONAZOLE [Interacting]
     Active Substance: FLUCONAZOLE
     Indication: Meningitis cryptococcal
  10. TENOFOVIR [Concomitant]
     Active Substance: TENOFOVIR
     Indication: Chronic hepatitis B
  11. ENTECAVIR [Concomitant]
     Active Substance: ENTECAVIR
     Indication: Chronic hepatitis B
  12. FLUCYTOSINE [Concomitant]
     Active Substance: FLUCYTOSINE
     Indication: Meningitis cryptococcal
  13. AMPHOTERICIN B [Concomitant]
     Active Substance: AMPHOTERICIN B
     Indication: Meningitis cryptococcal

REACTIONS (5)
  - Meningitis cryptococcal [Unknown]
  - Drug level increased [Unknown]
  - Labelled drug-drug interaction medication error [Unknown]
  - Acute kidney injury [Unknown]
  - Drug ineffective [Unknown]
